FAERS Safety Report 11544553 (Version 1)
Quarter: 2015Q3

REPORT INFORMATION
  Report Type: Spontaneous
  Country: IN (occurrence: IN)
  Receive Date: 20150924
  Receipt Date: 20150924
  Transmission Date: 20151125
  Serious: Yes (Other)
  Sender: FDA-Public Use
  Company Number: IN-ASTRAZENECA-2015SE91447

PATIENT
  Age: 43 Year
  Sex: Male
  Weight: 87 kg

DRUGS (1)
  1. BRILINTA [Suspect]
     Active Substance: TICAGRELOR
     Indication: ACUTE MYOCARDIAL INFARCTION
     Dosage: EVERY 12 HOURS
     Route: 048
     Dates: start: 20150904, end: 20150906

REACTIONS (3)
  - Haematuria [Unknown]
  - Ocular hyperaemia [Unknown]
  - Subarachnoid haemorrhage [Unknown]
